FAERS Safety Report 21047558 (Version 1)
Quarter: 2022Q3

REPORT INFORMATION
  Report Type: Spontaneous
  Country: JP (occurrence: JP)
  Receive Date: 20220706
  Receipt Date: 20220706
  Transmission Date: 20221026
  Serious: Yes (Hospitalization)
  Sender: FDA-Public Use
  Company Number: JP-JOURNEY MEDICAL CORPORATION-2022JNY00675

PATIENT
  Age: 48 Year
  Sex: Male

DRUGS (1)
  1. MINOCYCLINE [Suspect]
     Active Substance: MINOCYCLINE HYDROCHLORIDE
     Indication: Streptococcal infection
     Dosage: UNK
     Route: 065

REACTIONS (2)
  - Basedow^s disease [Unknown]
  - Thyroid disorder [Unknown]
